FAERS Safety Report 22960798 (Version 2)
Quarter: 2023Q4

REPORT INFORMATION
  Report Type: Report from Study
  Country: US (occurrence: US)
  Receive Date: 20230920
  Receipt Date: 20231010
  Transmission Date: 20240109
  Serious: Yes (Hospitalization)
  Sender: FDA-Public Use
  Company Number: US-ALNYLAM PHARMACEUTICALS, INC.-ALN-2023-004692

PATIENT

DRUGS (2)
  1. ONPATTRO [Suspect]
     Active Substance: PATISIRAN SODIUM
     Indication: Hereditary neuropathic amyloidosis
     Dosage: 20.7 MILLIGRAM, Q3W
     Route: 042
     Dates: start: 20201030, end: 2023
  2. ONPATTRO [Suspect]
     Active Substance: PATISIRAN SODIUM
     Dosage: UNK
     Route: 065
     Dates: end: 20230914

REACTIONS (5)
  - Atrial fibrillation [Unknown]
  - Cardiac disorder [Unknown]
  - Cardiac function test abnormal [Unknown]
  - Blood urine present [Unknown]
  - Drug ineffective [Unknown]
